FAERS Safety Report 24553604 (Version 1)
Quarter: 2024Q4

REPORT INFORMATION
  Report Type: Report from Study
  Country: GR (occurrence: GR)
  Receive Date: 20241028
  Receipt Date: 20241028
  Transmission Date: 20250114
  Serious: No
  Sender: ROCHE
  Company Number: GR-ELI_LILLY_AND_COMPANY-GR202212013107

PATIENT
  Age: 3 Year
  Sex: Female

DRUGS (1)
  1. SOMATROPIN [Suspect]
     Active Substance: SOMATROPIN
     Indication: Growth hormone deficiency
     Route: 058
     Dates: start: 20221027

REACTIONS (3)
  - Somnolence [Unknown]
  - Sleep disorder [Unknown]
  - Enuresis [Unknown]
